FAERS Safety Report 7083972-9 (Version None)
Quarter: 2010Q4

REPORT INFORMATION
  Report Type: 
  Country: None (occurrence: None)
  Receive Date: 20101104
  Receipt Date: 20100609
  Transmission Date: 20110411
  Serious: No
  Sender: FDA-Public Use
  Company Number: US-ABBOTT-10P-163-0651443-00

PATIENT
  Sex: Male
  Weight: 68.1 kg

DRUGS (7)
  1. KALETRA [Suspect]
     Indication: HIV INFECTION
     Dates: start: 20070101, end: 20100601
  2. KALETRA [Suspect]
     Dates: start: 20100601, end: 20100607
  3. TRUVADA [Suspect]
     Indication: HIV INFECTION
     Dates: start: 20070101, end: 20100601
  4. TRUVADA [Suspect]
     Dates: start: 20100601, end: 20100607
  5. ASPIRIN [Concomitant]
     Indication: CARDIAC OPERATION
  6. HYDROCODONE [Concomitant]
     Indication: PAIN
  7. AMBIEN [Concomitant]
     Indication: INSOMNIA

REACTIONS (1)
  - COUGH [None]
